FAERS Safety Report 20103693 (Version 1)
Quarter: 2021Q4

REPORT INFORMATION
  Report Type: Spontaneous
  Country: US (occurrence: None)
  Receive Date: 20211123
  Receipt Date: 20211123
  Transmission Date: 20220303
  Serious: Yes (Life-Threatening, Hospitalization, Other)
  Sender: FDA-Public Use
  Company Number: None

PATIENT
  Sex: Female

DRUGS (2)
  1. ZELBORAF [Suspect]
     Active Substance: VEMURAFENIB
     Indication: Malignant melanoma
     Dosage: FREQUENCY : TWICE A DAY;?
     Route: 048
  2. COTELLIC [Suspect]
     Active Substance: COBIMETINIB
     Indication: Malignant melanoma
     Dosage: FREQUENCY : DAILY;?
     Route: 048

REACTIONS (5)
  - Sepsis [None]
  - Rash [None]
  - Pyrexia [None]
  - Diarrhoea [None]
  - Acute kidney injury [None]

NARRATIVE: CASE EVENT DATE: 20211116
